FAERS Safety Report 4435046-0 (Version None)
Quarter: 2004Q3

REPORT INFORMATION
  Report Type: 
  Country: None (occurrence: None)
  Receive Date: 20040726
  Receipt Date: 20040226
  Transmission Date: 20050211
  Serious: No
  Sender: FDA-Public Use
  Company Number: USA040260312

PATIENT
  Age: 61 Year
  Sex: Female

DRUGS (4)
  1. FORTEO [Suspect]
     Indication: BONE DENSITY DECREASED
     Dosage: 20 UG/1 DAY
     Dates: start: 20040121
  2. EVISTA [Suspect]
     Dates: start: 19990101
  3. SYNTHROID [Concomitant]
  4. LIPITOR [Concomitant]

REACTIONS (4)
  - ARTHRALGIA [None]
  - CREPITATIONS [None]
  - EMOTIONAL DISORDER [None]
  - HOT FLUSH [None]
